FAERS Safety Report 12195429 (Version 1)
Quarter: 2016Q1

REPORT INFORMATION
  Report Type: Spontaneous
  Country: FR (occurrence: FR)
  Receive Date: 20160321
  Receipt Date: 20160321
  Transmission Date: 20160526
  Serious: Yes (Disabling)
  Sender: FDA-Public Use
  Company Number: FR-PFIZER INC-2016161147

PATIENT
  Age: 43 Year
  Sex: Female
  Weight: 62 kg

DRUGS (6)
  1. XANAX [Suspect]
     Active Substance: ALPRAZOLAM
     Indication: ANXIETY
     Dosage: 0.50 MG, UNK FOR YEARS
     Route: 048
  2. FLOXYFRAL [Suspect]
     Active Substance: FLUVOXAMINE
     Indication: DEPRESSION
     Dosage: 0.5 DF OF 50 MG, 2X/DAY
     Route: 048
     Dates: start: 2006, end: 2006
  3. MEDIATOR [Suspect]
     Active Substance: BENFLUOREX
     Indication: HYPERTRIGLYCERIDAEMIA
     Dosage: 1 TO 2 TABLETS OF 150 MG DAILY
     Route: 048
     Dates: start: 2006, end: 2009
  4. STRESAM [Suspect]
     Active Substance: ETIFOXINE
     Indication: DEPRESSION
     Dosage: 1 DF, 1X/DAY
     Route: 048
     Dates: start: 2006, end: 2006
  5. MODURETIC 5-50 [Suspect]
     Active Substance: AMILORIDE HYDROCHLORIDE\HYDROCHLOROTHIAZIDE
     Indication: WEIGHT DECREASED
     Dosage: 0.5 DF, 1X/DAY
     Route: 048
     Dates: start: 2006
  6. DAFLON [Suspect]
     Active Substance: DIOSMIN\HESPERIDIN
     Indication: PERIPHERAL VENOUS DISEASE
     Dosage: 2 DF, 1X/DAY FOR MONTHS
     Route: 048

REACTIONS (2)
  - Aortic valve incompetence [Recovered/Resolved with Sequelae]
  - Aortic aneurysm [Recovered/Resolved with Sequelae]

NARRATIVE: CASE EVENT DATE: 201101
